FAERS Safety Report 4808689-X (Version None)
Quarter: 2005Q4

REPORT INFORMATION
  Report Type: 
  Country: None (occurrence: None)
  Receive Date: 20051021
  Receipt Date: 20011118
  Transmission Date: 20060501
  Serious: No
  Sender: FDA-Public Use
  Company Number: DE_011107394

PATIENT
  Sex: Female

DRUGS (3)
  1. ZYPREXA [Suspect]
     Indication: SCHIZOAFFECTIVE DISORDER
     Dosage: 10 MG/DAY
     Dates: start: 19970101
  2. ERGENYL CHRONO [Concomitant]
  3. DOCITON (PROPRANOLOL HYDROCHLORIDE) [Concomitant]

REACTIONS (2)
  - LIVER DISORDER [None]
  - NEUTROPHIL COUNT DECREASED [None]
